FAERS Safety Report 4673099-5 (Version None)
Quarter: 2005Q2

REPORT INFORMATION
  Report Type: 
  Country: None (occurrence: None)
  Receive Date: 20050524
  Receipt Date: 20050524
  Transmission Date: 20051028
  Serious: No
  Sender: FDA-Public Use
  Company Number: None

PATIENT
  Age: 69 Year
  Sex: Female
  Weight: 71.4415 kg

DRUGS (3)
  1. ADALIMUMAB 40 MG SYRINGE [Suspect]
     Indication: RHEUMATOID ARTHRITIS
     Dosage: 40 MG    SUBCUTANEO
     Route: 058
     Dates: start: 20050217, end: 20050412
  2. METHOTREXATE [Concomitant]
  3. PREDNISONE TAB [Concomitant]

REACTIONS (4)
  - ABSCESS DRAINAGE [None]
  - RASH PUSTULAR [None]
  - STAPHYLOCOCCAL INFECTION [None]
  - SUBCUTANEOUS ABSCESS [None]
